FAERS Safety Report 22367405 (Version 1)
Quarter: 2023Q2

REPORT INFORMATION
  Report Type: Other
  Country: None (occurrence: CN)
  Receive Date: 20230525
  Receipt Date: 20230525
  Transmission Date: 20230722
  Serious: Yes (Hospitalization)
  Sender: FDA-Public Use
  Company Number: CN-Nephron Pharmaceuticals Corporation-2141989

PATIENT
  Age: 73 Year
  Sex: Male

DRUGS (4)
  1. KETOROLAC TROMETHAMINE [Suspect]
     Active Substance: KETOROLAC TROMETHAMINE
  2. NOREPINEPHRINE [Concomitant]
     Active Substance: NOREPINEPHRINE
  3. SOMATOSTATIN [Concomitant]
     Active Substance: SOMATOSTATIN
  4. ESOMEPRAZOLE SODIUM [Concomitant]
     Active Substance: ESOMEPRAZOLE SODIUM

REACTIONS (2)
  - Peptic ulcer [Recovering/Resolving]
  - Shock haemorrhagic [Recovering/Resolving]
